FAERS Safety Report 9051113 (Version 1)
Quarter: 2013Q1

REPORT INFORMATION
  Report Type: Spontaneous
  Country: US (occurrence: US)
  Receive Date: 20130206
  Receipt Date: 20130206
  Transmission Date: 20140127
  Serious: Yes (Other)
  Sender: FDA-Public Use
  Company Number: US-PFIZER INC-2013045189

PATIENT
  Age: 70 Year
  Sex: Female
  Weight: 63.5 kg

DRUGS (8)
  1. AROMASIN [Suspect]
     Indication: BREAST CANCER
     Dosage: ONE TABLET EVERY THREE DAYS FOR TWO WEEKS
     Route: 048
     Dates: start: 2012
  2. AROMASIN [Suspect]
     Dosage: ONE TABLET EVERY TWO DAYS FOR TWO WEEKS
     Route: 048
  3. AROMASIN [Suspect]
     Dosage: 1 DF, ALTERNATE DAY FOR TWO WEEKS
     Route: 048
  4. AROMASIN [Suspect]
     Dosage: 1 DF, DAILY
     Route: 048
  5. AROMASIN [Suspect]
     Dosage: 25 MG, ALTERNATE DAY FOR TWO WEEKS
     Route: 048
     Dates: start: 201301
  6. EXEMESTANE [Suspect]
     Dosage: UNK
  7. CALCIUM [Concomitant]
     Dosage: UNK, DAILY
  8. MULTIVITAMINS W/MINERALS [Concomitant]
     Dosage: UNK, DAILY

REACTIONS (5)
  - Renal pain [Unknown]
  - Blood urine present [Unknown]
  - Rash [Not Recovered/Not Resolved]
  - Malaise [Unknown]
  - Inappropriate schedule of drug administration [Unknown]
